FAERS Safety Report 6466993-6 (Version None)
Quarter: 2009Q4

REPORT INFORMATION
  Report Type: 
  Country: None (occurrence: None)
  Receive Date: 20091202
  Receipt Date: 20091120
  Transmission Date: 20100525
  Serious: Yes (Other)
  Sender: FDA-Public Use
  Company Number: TR-ELI_LILLY_AND_COMPANY-TR200908005677

PATIENT
  Age: 21 Year
  Sex: Male

DRUGS (1)
  1. PROZAC [Suspect]
     Indication: DEPRESSIVE SYMPTOM
     Dosage: 10 MG, DAILY (1/D)
     Route: 065

REACTIONS (1)
  - PUSTULAR PSORIASIS [None]
